FAERS Safety Report 5052159-3 (Version None)
Quarter: 2006Q3

REPORT INFORMATION
  Report Type: 
  Country: None (occurrence: None)
  Receive Date: 20060714
  Receipt Date: 20060714
  Transmission Date: 20061208
  Serious: Yes (Hospitalization)
  Sender: FDA-Public Use
  Company Number: None

PATIENT
  Age: 36 Year
  Sex: Female

DRUGS (1)
  1. LAMISIL [Suspect]
     Indication: ONYCHOMYCOSIS
     Dates: start: 20060419, end: 20060427

REACTIONS (12)
  - ABDOMINAL PAIN [None]
  - ALANINE AMINOTRANSFERASE INCREASED [None]
  - ANOREXIA [None]
  - ASPARTATE AMINOTRANSFERASE INCREASED [None]
  - ASTHENIA [None]
  - BLOOD IMMUNOGLOBULIN E INCREASED [None]
  - C-REACTIVE PROTEIN INCREASED [None]
  - DIARRHOEA [None]
  - DIZZINESS [None]
  - PAIN [None]
  - PROTHROMBIN TIME PROLONGED [None]
  - PYREXIA [None]
